FAERS Safety Report 25058399 (Version 3)
Quarter: 2025Q2

REPORT INFORMATION
  Report Type: Spontaneous
  Country: IN (occurrence: IN)
  Receive Date: 20250310
  Receipt Date: 20250421
  Transmission Date: 20250716
  Serious: Yes (Hospitalization, Other)
  Sender: IPSEN BIOPHARMACEUTICALS, INC.
  Company Number: IN-SERVIER-S25002858

PATIENT
  Age: 76 Year
  Sex: Female

DRUGS (2)
  1. ONIVYDE [Suspect]
     Active Substance: IRINOTECAN HYDROCHLORIDE
     Indication: Product used for unknown indication
     Route: 065
  2. ONIVYDE [Suspect]
     Active Substance: IRINOTECAN HYDROCHLORIDE
     Route: 065
     Dates: start: 20250306

REACTIONS (5)
  - Hepatomegaly [Unknown]
  - Hepatic pain [Unknown]
  - Malignant neoplasm progression [Not Recovered/Not Resolved]
  - Quality of life decreased [Not Recovered/Not Resolved]
  - Drug ineffective [Recovered/Resolved]

NARRATIVE: CASE EVENT DATE: 20250301
